FAERS Safety Report 12815672 (Version 1)
Quarter: 2016Q4

REPORT INFORMATION
  Report Type: Spontaneous
  Country: US (occurrence: US)
  Receive Date: 20161005
  Receipt Date: 20161005
  Transmission Date: 20170207
  Serious: No
  Sender: FDA-Public Use
  Company Number: None

PATIENT
  Age: 49 Year
  Sex: Male
  Weight: 107.4 kg

DRUGS (1)
  1. CIPROFLOXACIN/DEXTROSE [Suspect]
     Active Substance: CIPROFLOXACIN HYDROCHLORIDE\DEXTROSE
     Indication: GASTROENTERITIS
     Route: 042
     Dates: start: 20161003, end: 20161003

REACTIONS (2)
  - Rash [None]
  - Pruritus [None]

NARRATIVE: CASE EVENT DATE: 20160103
